FAERS Safety Report 13946280 (Version 2)
Quarter: 2018Q1

REPORT INFORMATION
  Report Type: Spontaneous
  Country: US (occurrence: US)
  Receive Date: 20170907
  Receipt Date: 20180103
  Transmission Date: 20180508
  Serious: Yes (Hospitalization, Other)
  Sender: FDA-Public Use
  Company Number: US-DSJP-DSU-2017-135589

PATIENT

DRUGS (1)
  1. BENICAR [Suspect]
     Active Substance: OLMESARTAN MEDOXOMIL
     Indication: PRODUCT USED FOR UNKNOWN INDICATION
     Dosage: 40 MG,QD
     Route: 048
     Dates: start: 20141215, end: 20170928

REACTIONS (9)
  - Haemorrhoids [Unknown]
  - Gastric ulcer [Unknown]
  - Gastritis erosive [Recovering/Resolving]
  - Irritable bowel syndrome [Unknown]
  - Vertigo [Unknown]
  - Colitis [Recovering/Resolving]
  - Hiatus hernia [Not Recovered/Not Resolved]
  - Gastrooesophageal reflux disease [Unknown]
  - Bile duct stone [Recovered/Resolved]

NARRATIVE: CASE EVENT DATE: 20150315
